FAERS Safety Report 5335300-4 (Version None)
Quarter: 2007Q1

REPORT INFORMATION
  Report Type: 
  Country: None (occurrence: None)
  Receive Date: 20070308
  Receipt Date: 20070126
  Transmission Date: 20070707
  Serious: No
  Sender: FDA-Public Use
  Company Number: 2007-BP-01118BP

PATIENT
  Sex: Female

DRUGS (6)
  1. SPIRIVA [Suspect]
     Indication: CHRONIC OBSTRUCTIVE PULMONARY DISEASE
     Dosage: 18 MCG (18 MCG, 1 IN 1 D), IH
     Route: 055
     Dates: start: 20060101, end: 20060301
  2. DUONEB [Concomitant]
  3. MUCINEX [Concomitant]
  4. ZOCOR [Concomitant]
  5. VITAMIN (VITAMINS) [Concomitant]
  6. COMBIVENT [Concomitant]

REACTIONS (5)
  - ANXIETY [None]
  - DRY MOUTH [None]
  - DYSPNOEA [None]
  - MOUTH HAEMORRHAGE [None]
  - ORAL MUCOSAL BLISTERING [None]
